FAERS Safety Report 20855003 (Version 1)
Quarter: 2022Q2

REPORT INFORMATION
  Report Type: Spontaneous
  Country: US (occurrence: None)
  Receive Date: 20220519
  Receipt Date: 20220519
  Transmission Date: 20220721
  Serious: Yes (Other)
  Sender: FDA-Public Use
  Company Number: None

PATIENT
  Age: 27 Year
  Sex: Female
  Weight: 67.5 kg

DRUGS (1)
  1. ATOMOXETINE [Suspect]
     Active Substance: ATOMOXETINE
     Dosage: FREQUENCY : DAILY;?
     Route: 048
     Dates: start: 20220426

REACTIONS (1)
  - Palpitations [None]

NARRATIVE: CASE EVENT DATE: 20220518
